FAERS Safety Report 8096115-X (Version None)
Quarter: 2011Q4

REPORT INFORMATION
  Report Type: 
  Country: None (occurrence: None)
  Receive Date: 20111222
  Receipt Date: 20111007
  Transmission Date: 20120403
  Serious: Yes (Death)
  Sender: FDA-Public Use
  Company Number: UTC-011039

PATIENT
  Age: 47 Year
  Sex: Female
  Weight: 84.18 kg

DRUGS (2)
  1. TYVASO [Suspect]
     Indication: PULMONARY ARTERIAL HYPERTENSION
     Dosage: 18 -TO 54 MCG (3 TO 9 BREATHS)  (4 IN 1 D), INHALATION
     Route: 055
     Dates: start: 20110914
  2. TRACLEER (BOSENTAN) (UNKNOWN [Concomitant]

REACTIONS (1)
  - DEATH [None]
